FAERS Safety Report 10654143 (Version 1)
Quarter: 2014Q4

REPORT INFORMATION
  Report Type: Spontaneous
  Country: US (occurrence: None)
  Receive Date: 20141215
  Receipt Date: 20141215
  Transmission Date: 20150529
  Serious: Yes (Disabling)
  Sender: FDA-Public Use
  Company Number: None

PATIENT
  Age: 60 Year
  Sex: Female
  Weight: 54.43 kg

DRUGS (1)
  1. TUCKS HC [Suspect]
     Active Substance: HYDROCORTISONE ACETATE
     Indication: HAEMORRHOIDS
     Dates: start: 20141022, end: 20141028

REACTIONS (11)
  - Diarrhoea [None]
  - Abdominal discomfort [None]
  - Disturbance in attention [None]
  - Heart rate irregular [None]
  - Heart rate increased [None]
  - Urticaria [None]
  - Impaired driving ability [None]
  - Cardiac disorder [None]
  - Nervous system disorder [None]
  - Dizziness [None]
  - Anxiety [None]

NARRATIVE: CASE EVENT DATE: 20141022
